FAERS Safety Report 20061639 (Version 1)
Quarter: 2021Q4

REPORT INFORMATION
  Report Type: Spontaneous
  Country: BR (occurrence: BR)
  Receive Date: 20211112
  Receipt Date: 20211112
  Transmission Date: 20220303
  Serious: Yes (Hospitalization, Other)
  Sender: FDA-Public Use
  Company Number: BR-ABBVIE-21K-020-4156652-00

PATIENT
  Age: 30 Year
  Sex: Male
  Weight: 52 kg

DRUGS (3)
  1. VALPROATE SODIUM [Suspect]
     Active Substance: VALPROATE SODIUM
     Indication: Seizure
     Route: 065
  2. VALPROATE SODIUM [Suspect]
     Active Substance: VALPROATE SODIUM
     Indication: Seizure
     Route: 048
  3. LAMOTRIGINE [Concomitant]
     Active Substance: LAMOTRIGINE
     Indication: Product used for unknown indication

REACTIONS (15)
  - Seizure [Not Recovered/Not Resolved]
  - Laryngeal oedema [Unknown]
  - Wound infection [Unknown]
  - Weight decreased [Unknown]
  - Aggression [Recovering/Resolving]
  - Tremor [Unknown]
  - Agitation [Unknown]
  - Alopecia [Unknown]
  - Diarrhoea [Unknown]
  - Vomiting [Unknown]
  - Nausea [Unknown]
  - Headache [Unknown]
  - Eye pain [Unknown]
  - Throat tightness [Unknown]
  - Wrong technique in product usage process [Unknown]
